FAERS Safety Report 5831550-9 (Version None)
Quarter: 2008Q3

REPORT INFORMATION
  Report Type: 
  Country: None (occurrence: None)
  Receive Date: 20080801
  Receipt Date: 20080722
  Transmission Date: 20090109
  Serious: Yes (Other)
  Sender: FDA-Public Use
  Company Number: FR-PFIZER INC-2008061438

PATIENT
  Sex: Female

DRUGS (1)
  1. ZOLOFT [Suspect]
     Indication: DEPRESSION

REACTIONS (5)
  - DRUG INTOLERANCE [None]
  - LACRIMATION INCREASED [None]
  - MOROSE [None]
  - NAUSEA [None]
  - SOMNOLENCE [None]
